FAERS Safety Report 5623709-0 (Version None)
Quarter: 2008Q1

REPORT INFORMATION
  Report Type: 
  Country: None (occurrence: None)
  Receive Date: 20080212
  Receipt Date: 20080201
  Transmission Date: 20080703
  Serious: Yes (Life-Threatening, Hospitalization)
  Sender: FDA-Public Use
  Company Number: JP-GILEAD-2007-0013205

PATIENT
  Sex: Male
  Weight: 66 kg

DRUGS (43)
  1. HEPSERA [Suspect]
     Route: 048
     Dates: start: 20030221, end: 20060217
  2. LAMIVUDINE [Suspect]
     Indication: DRUG USE FOR UNKNOWN INDICATION
     Route: 048
     Dates: start: 20010101, end: 20060217
  3. PREDONINE [Suspect]
  4. ME-PREDNISOLONE NA SUCC. [Suspect]
  5. FUROSEMIDE [Concomitant]
  6. FAMOTIDINE [Concomitant]
  7. PROTEIN SUPPLEMENT [Concomitant]
  8. FELBINAC [Concomitant]
  9. SPIRONOLACTONE [Concomitant]
  10. AZOSEMIDE [Concomitant]
  11. BROTIZOLAM [Concomitant]
  12. AZULENE SODIUM SULPHONATE [Concomitant]
  13. PREDNISOLON VALEROACETATE [Concomitant]
  14. MAGNESIUM OXIDE [Concomitant]
  15. LACTULOSE [Concomitant]
  16. PENTOXYVERINE CITRATE [Concomitant]
  17. BISOLVON [Concomitant]
  18. LOXOPROFEN [Concomitant]
  19. UFT [Concomitant]
  20. LEVOFLOXACIN [Concomitant]
  21. SODIUM ALGINATE [Concomitant]
  22. AMINOLEBAN EN [Concomitant]
  23. MENATETRENONE [Concomitant]
  24. KETOPROFEN [Concomitant]
  25. INDOMETHACIN [Concomitant]
  26. AMMONIUM GLYCYRRHIZATE [Concomitant]
  27. ALBUMIN (HUMAN) [Concomitant]
  28. POTACOL-R [Concomitant]
  29. ELECTROLYTES [Concomitant]
  30. VITAMEDIN [Concomitant]
  31. MICAFUNGIN [Concomitant]
  32. MENATETRENONE [Concomitant]
  33. AMINO ACID INJ [Concomitant]
  34. SOYBEAN OIL [Concomitant]
  35. SOLULACT [Concomitant]
  36. LIGNOCAINE HYDROCHLORIDE [Concomitant]
  37. FLURBIPROFEN AXETIL [Concomitant]
  38. HYDROCORTISONE NA SUCC [Concomitant]
  39. BAKTAR [Concomitant]
  40. VITAMIN A OIL [Concomitant]
  41. DEQUALINIUM CHLORIDE [Concomitant]
  42. HEPARIN SODIUM INJECTION [Concomitant]
  43. MAINTENANCE MEDIUM (WITH GLUCOSE) [Concomitant]

REACTIONS (2)
  - HEPATITIS B [None]
  - PNEUMOCYSTIS JIROVECI PNEUMONIA [None]
